FAERS Safety Report 6291384-0 (Version None)
Quarter: 2009Q3

REPORT INFORMATION
  Report Type: 
  Country: None (occurrence: None)
  Receive Date: 20090729
  Receipt Date: 20090729
  Transmission Date: 20100115
  Serious: No
  Sender: FDA-Public Use
  Company Number: None

PATIENT
  Age: 39 Year

DRUGS (1)
  1. VARENICLINE [Suspect]
     Indication: SMOKING CESSATION THERAPY
     Dosage: 1 MG, BID, PO
     Route: 048
     Dates: start: 20090625, end: 20090724

REACTIONS (4)
  - HEADACHE [None]
  - LETHARGY [None]
  - LIBIDO DECREASED [None]
  - MOOD SWINGS [None]
